FAERS Safety Report 6175433-6 (Version None)
Quarter: 2009Q2

REPORT INFORMATION
  Report Type: 
  Country: None (occurrence: None)
  Receive Date: 20090429
  Receipt Date: 20090413
  Transmission Date: 20091009
  Serious: Yes (Other)
  Sender: FDA-Public Use
  Company Number: JPI-P-006949

PATIENT
  Age: 48 Year
  Sex: Female

DRUGS (3)
  1. XYREM [Suspect]
     Indication: NARCOLEPSY
     Dosage: 6 GM (3 GM, 2 IN 1 D), ORAL, 9 GM (4.5 GM, 2 IN 1 D), ORAL, 8 GM (4 GM, 2 IN 1 D), ORAL
     Route: 048
     Dates: start: 20090404, end: 20090401
  2. XYREM [Suspect]
     Indication: NARCOLEPSY
     Dosage: 6 GM (3 GM, 2 IN 1 D), ORAL, 9 GM (4.5 GM, 2 IN 1 D), ORAL, 8 GM (4 GM, 2 IN 1 D), ORAL
     Route: 048
     Dates: start: 20090403, end: 20090403
  3. XYREM [Suspect]
     Indication: NARCOLEPSY
     Dosage: 6 GM (3 GM, 2 IN 1 D), ORAL, 9 GM (4.5 GM, 2 IN 1 D), ORAL, 8 GM (4 GM, 2 IN 1 D), ORAL
     Route: 048
     Dates: start: 20090412

REACTIONS (7)
  - ASPIRATION [None]
  - COUGH [None]
  - HEADACHE [None]
  - INSOMNIA [None]
  - NAUSEA [None]
  - UNRESPONSIVE TO STIMULI [None]
  - VOMITING [None]
